FAERS Safety Report 8145176-8 (Version None)
Quarter: 2012Q1

REPORT INFORMATION
  Report Type: 
  Country: None (occurrence: None)
  Receive Date: 20120217
  Receipt Date: 20120214
  Transmission Date: 20120608
  Serious: Yes (Other)
  Sender: FDA-Public Use
  Company Number: CA-PURDUE-CAN-2012-0002629

PATIENT
  Age: 20 Year
  Sex: Male

DRUGS (3)
  1. DIAZEPAM [Suspect]
  2. MARIJUANA [Suspect]
     Indication: PRODUCT USED FOR UNKNOWN INDICATION
     Dosage: UNK
     Route: 065
  3. HYDROMORPHONE HCL [Suspect]
     Indication: PRODUCT USED FOR UNKNOWN INDICATION
     Dosage: UNK
     Route: 065

REACTIONS (4)
  - LOSS OF CONSCIOUSNESS [None]
  - SUBSTANCE ABUSE [None]
  - DRUG DEPENDENCE [None]
  - IMPAIRED DRIVING ABILITY [None]
